FAERS Safety Report 6283306-3 (Version None)
Quarter: 2009Q3

REPORT INFORMATION
  Report Type: 
  Country: None (occurrence: None)
  Receive Date: 20090724
  Receipt Date: 20090128
  Transmission Date: 20100115
  Serious: No
  Sender: FDA-Public Use
  Company Number: US-AMGEN-KDL331032

PATIENT
  Age: 80 Year
  Sex: Male
  Weight: 72.6 kg

DRUGS (5)
  1. PROCRIT [Suspect]
     Indication: RENAL FAILURE CHRONIC
     Route: 058
     Dates: start: 20081101
  2. UNSPECIFIED ANTIHYPERTENSIVE AGENT [Concomitant]
     Dates: start: 19990101
  3. DIURETICS [Concomitant]
     Route: 048
     Dates: start: 19990101
  4. CENTRUM SILVER [Concomitant]
     Route: 048
     Dates: start: 19990101
  5. ASPIRIN [Concomitant]
     Route: 048
     Dates: start: 19990101

REACTIONS (2)
  - FATIGUE [None]
  - GAIT DISTURBANCE [None]
